FAERS Safety Report 21861299 (Version 2)
Quarter: 2023Q4

REPORT INFORMATION
  Report Type: Spontaneous
  Country: JP (occurrence: JP)
  Receive Date: 20230113
  Receipt Date: 20231124
  Transmission Date: 20240110
  Serious: Yes (Hospitalization, Other)
  Sender: FDA-Public Use
  Company Number: JP-GLAXOSMITHKLINE-JP2023JPN003144

PATIENT

DRUGS (2)
  1. LAMICTAL [Suspect]
     Active Substance: LAMOTRIGINE
     Indication: Epilepsy
     Dosage: UNK
     Route: 048
  2. VALPROATE SODIUM [Concomitant]
     Active Substance: VALPROATE SODIUM
     Indication: Epilepsy
     Dosage: UNK
     Route: 048

REACTIONS (12)
  - Drug reaction with eosinophilia and systemic symptoms [Recovering/Resolving]
  - Pyrexia [Unknown]
  - Dermatitis exfoliative generalised [Unknown]
  - Malaise [Unknown]
  - Movement disorder [Unknown]
  - Shock symptom [Unknown]
  - Fulminant type 1 diabetes mellitus [Unknown]
  - Diabetic ketoacidosis [Unknown]
  - Hyperthyroidism [Unknown]
  - Thyrotoxic crisis [Unknown]
  - Immune reconstitution inflammatory syndrome [Recovering/Resolving]
  - Multi-organ disorder [Unknown]
